FAERS Safety Report 15411022 (Version 1)
Quarter: 2018Q3

REPORT INFORMATION
  Report Type: Spontaneous
  Country: US (occurrence: US)
  Receive Date: 20180921
  Receipt Date: 20180921
  Transmission Date: 20181010
  Serious: No
  Sender: FDA-Public Use
  Company Number: US-AUROBINDO-AUR-APL-2017-41149

PATIENT
  Sex: Female

DRUGS (1)
  1. ALENDRONATE SODIUM 70 MG [Suspect]
     Active Substance: ALENDRONATE SODIUM
     Indication: OSTEOPOROSIS
     Dosage: 70 MG, ONCE WEEKLY
     Route: 048
     Dates: start: 201311, end: 20170605

REACTIONS (1)
  - Gastrooesophageal reflux disease [Recovering/Resolving]
